FAERS Safety Report 9176100 (Version 1)
Quarter: 2013Q1

REPORT INFORMATION
  Report Type: Report from Study
  Country: CA (occurrence: CA)
  Receive Date: 20130321
  Receipt Date: 20130321
  Transmission Date: 20140127
  Serious: Yes (Hospitalization)
  Sender: FDA-Public Use
  Company Number: CA-ABBOTT-13P-028-1064067-00

PATIENT
  Age: 57 None
  Sex: Female

DRUGS (3)
  1. HUMIRA [Suspect]
     Indication: RHEUMATOID ARTHRITIS
     Route: 058
     Dates: start: 20100305, end: 201302
  2. METHOTREXATE [Concomitant]
     Indication: RHEUMATOID ARTHRITIS
     Dates: end: 2013
  3. HYDROQUINE [Concomitant]
     Indication: PRODUCT USED FOR UNKNOWN INDICATION

REACTIONS (5)
  - Abasia [Not Recovered/Not Resolved]
  - Staphylococcal infection [Unknown]
  - Malaise [Not Recovered/Not Resolved]
  - Intraspinal abscess [Not Recovered/Not Resolved]
  - Back pain [Not Recovered/Not Resolved]
